FAERS Safety Report 5855699-X (Version None)
Quarter: 2008Q3

REPORT INFORMATION
  Report Type: 
  Country: None (occurrence: None)
  Receive Date: 20080825
  Receipt Date: 20080812
  Transmission Date: 20090109
  Serious: Yes (Hospitalization)
  Sender: FDA-Public Use
  Company Number: US-RANBAXY-2008RR-17283

PATIENT

DRUGS (8)
  1. LEVOFLOXACIN [Suspect]
     Indication: SINUSITIS
     Dosage: 500 MG, QD
  2. LEVOFLOXACIN [Suspect]
     Indication: VERTIGO
  3. CIPROFLOXACIN [Concomitant]
     Indication: SINUSITIS
     Dosage: 250 MG, BID
  4. CIPROFLOXACIN [Concomitant]
     Indication: URINARY TRACT INFECTION
  5. MECLIZINE [Concomitant]
     Indication: SINUSITIS
     Dosage: 12.5 MG, PRN
  6. MECLIZINE [Concomitant]
     Indication: VERTIGO
  7. AMI-TEX [Concomitant]
     Indication: SINUSITIS
     Dosage: UNK
  8. AMI-TEX [Concomitant]
     Indication: VERTIGO

REACTIONS (1)
  - DELIRIUM [None]
